FAERS Safety Report 9765244 (Version 1)
Quarter: 2013Q4

REPORT INFORMATION
  Report Type: Spontaneous
  Country: US (occurrence: US)
  Receive Date: 20131217
  Receipt Date: 20131217
  Transmission Date: 20140711
  Serious: No
  Sender: FDA-Public Use
  Company Number: US-GLAXOSMITHKLINE-A1046487A

PATIENT
  Sex: Female

DRUGS (3)
  1. SORIATANE [Suspect]
     Indication: PSORIASIS
     Dosage: 2CAP PER DAY
     Route: 048
     Dates: start: 201301, end: 201309
  2. THYROID MEDICATION [Concomitant]
  3. PROZAC [Concomitant]

REACTIONS (5)
  - Abdominal pain upper [Unknown]
  - Lip exfoliation [Unknown]
  - Nail disorder [Unknown]
  - Madarosis [Unknown]
  - Nail disorder [Unknown]
